FAERS Safety Report 4513550-4 (Version None)
Quarter: 2004Q4

REPORT INFORMATION
  Report Type: 
  Country: None (occurrence: None)
  Receive Date: 20041130
  Receipt Date: 20040715
  Transmission Date: 20050328
  Serious: No
  Sender: FDA-Public Use
  Company Number: US-GLAXOSMITHKLINE-A0518423A

PATIENT
  Age: 29 Year
  Sex: Female
  Weight: 101.4 kg

DRUGS (2)
  1. WELLBUTRIN XL [Suspect]
     Indication: DEPRESSION
     Dosage: 150MG PER DAY
     Route: 048
  2. ORAL CONTRACEPTIVE [Concomitant]
     Route: 048

REACTIONS (1)
  - DRUG INEFFECTIVE [None]
